FAERS Safety Report 6757520-4 (Version None)
Quarter: 2010Q2

REPORT INFORMATION
  Report Type: 
  Country: None (occurrence: None)
  Receive Date: 20100607
  Receipt Date: 20100601
  Transmission Date: 20101027
  Serious: No
  Sender: FDA-Public Use
  Company Number: 2008BI010458

PATIENT
  Age: 42 Year
  Sex: Female

DRUGS (2)
  1. TYSABRI [Suspect]
     Indication: MULTIPLE SCLEROSIS
     Route: 042
     Dates: start: 20080416, end: 20090513
  2. TYSABRI [Suspect]
     Route: 042
     Dates: start: 20090930

REACTIONS (18)
  - ALOPECIA [None]
  - DIARRHOEA [None]
  - DYSARTHRIA [None]
  - FATIGUE [None]
  - HALLUCINATION [None]
  - HEADACHE [None]
  - HOT FLUSH [None]
  - MUSCLE SPASMS [None]
  - NAUSEA [None]
  - NIGHT SWEATS [None]
  - OEDEMA PERIPHERAL [None]
  - PAIN [None]
  - SINUS HEADACHE [None]
  - SUNBURN [None]
  - VERTIGO [None]
  - VOMITING [None]
  - WEIGHT FLUCTUATION [None]
  - WEIGHT INCREASED [None]
